FAERS Safety Report 6299227-6 (Version None)
Quarter: 2009Q3

REPORT INFORMATION
  Report Type: 
  Country: None (occurrence: None)
  Receive Date: 20090806
  Receipt Date: 20090729
  Transmission Date: 20100115
  Serious: Yes (Hospitalization)
  Sender: FDA-Public Use
  Company Number: FR-PFIZER INC-2009247301

PATIENT
  Age: 57 Year

DRUGS (7)
  1. SOLU-MEDROL [Suspect]
     Dosage: UNK
     Route: 042
     Dates: start: 20081223, end: 20081223
  2. AVASTIN [Suspect]
     Indication: LUNG ADENOCARCINOMA
     Dosage: UNK
     Route: 042
     Dates: start: 20081223, end: 20081223
  3. CISPLATIN [Suspect]
     Indication: LUNG ADENOCARCINOMA
     Dosage: UNK
     Route: 042
     Dates: start: 20081223, end: 20081223
  4. ZOPHREN [Suspect]
     Dosage: UNK
     Route: 042
     Dates: start: 20081223, end: 20081223
  5. PRIMPERAN [Suspect]
     Dosage: 10 MG, 2X/DAY
     Route: 048
     Dates: start: 20081224, end: 20081229
  6. SOLUPRED [Suspect]
     Dosage: 20 MG, 1X/DAY
     Dates: start: 20081224, end: 20081229
  7. VINORELBINE [Suspect]
     Indication: LUNG ADENOCARCINOMA
     Dosage: UNK
     Route: 042
     Dates: start: 20081223, end: 20081223

REACTIONS (2)
  - CEREBROVASCULAR ACCIDENT [None]
  - THROMBOPHLEBITIS [None]
